FAERS Safety Report 21567489 (Version 1)
Quarter: 2022Q4

REPORT INFORMATION
  Report Type: Report from Study
  Country: HN (occurrence: HN)
  Receive Date: 20221108
  Receipt Date: 20221108
  Transmission Date: 20230112
  Serious: Yes (Disabling, Other)
  Sender: FDA-Public Use
  Company Number: HN-MYLANLABS-2022M1122704

PATIENT
  Sex: Male
  Weight: 58.9 kg

DRUGS (2)
  1. LIPITOR [Suspect]
     Active Substance: ATORVASTATIN CALCIUM
     Indication: Blood triglycerides abnormal
     Dosage: UNK
     Route: 048
  2. LIPITOR [Suspect]
     Active Substance: ATORVASTATIN CALCIUM
     Indication: Blood triglycerides abnormal
     Dosage: 20 MILLIGRAM, HS (1 TAB DAILY AT NIGHT)
     Route: 048

REACTIONS (2)
  - Dislocation of vertebra [Not Recovered/Not Resolved]
  - Hearing disability [Not Recovered/Not Resolved]
